FAERS Safety Report 7939768-6 (Version None)
Quarter: 2011Q4

REPORT INFORMATION
  Report Type: 
  Country: None (occurrence: None)
  Receive Date: 20111125
  Receipt Date: 20111121
  Transmission Date: 20120403
  Serious: Yes (Death)
  Sender: FDA-Public Use
  Company Number: PHEH2011US009041

PATIENT
  Sex: Male

DRUGS (1)
  1. EXJADE [Suspect]
     Indication: ACUTE MYELOID LEUKAEMIA
     Dosage: 2000 MG,DAILY
     Route: 048
     Dates: start: 20110520

REACTIONS (1)
  - ACUTE MYELOID LEUKAEMIA [None]
